FAERS Safety Report 19949168 (Version 1)
Quarter: 2021Q4

REPORT INFORMATION
  Report Type: Spontaneous
  Country: US (occurrence: US)
  Receive Date: 20211011
  Receipt Date: 20211011
  Transmission Date: 20220304
  Serious: No
  Sender: FDA-Public Use
  Company Number: None

PATIENT
  Sex: Female

DRUGS (1)
  1. HUMIRA [Suspect]
     Active Substance: ADALIMUMAB
     Indication: Psoriatic arthropathy
     Dosage: :40MG/0.4ML EVERY 2 WEEKS UNDER THE SKIN
     Route: 058
     Dates: start: 20210915

REACTIONS (1)
  - Therapy non-responder [None]
